FAERS Safety Report 4981541-5 (Version None)
Quarter: 2006Q2

REPORT INFORMATION
  Report Type: 
  Country: None (occurrence: None)
  Receive Date: 20060419
  Receipt Date: 20060405
  Transmission Date: 20061013
  Serious: Yes (Hospitalization)
  Sender: FDA-Public Use
  Company Number: US-2006-007936

PATIENT
  Age: 53 Year
  Sex: Male
  Weight: 104 kg

DRUGS (3)
  1. FLUDARA [Suspect]
     Indication: CHRONIC LYMPHOCYTIC LEUKAEMIA
     Dosage: 44 MG, EVERY 28 DAYS, INTRAVENOUS
     Route: 042
     Dates: start: 20051114, end: 20051118
  2. CYCLOPHOSPHAMIDE [Suspect]
     Indication: CHRONIC LYMPHOCYTIC LEUKAEMIA
     Dosage: 1320 MG, EVERY 28 DAYS, INTRAVENOUS
     Route: 042
     Dates: start: 20051114, end: 20051114
  3. RITUXAN [Suspect]
     Indication: CHRONIC LYMPHOCYTIC LEUKAEMIA
     Dosage: 733 MG, EVERY 28 DAYS, INTRAVENOUS
     Route: 042
     Dates: start: 20050807, end: 20051122

REACTIONS (4)
  - BACK PAIN [None]
  - CHILLS [None]
  - GENERAL PHYSICAL HEALTH DETERIORATION [None]
  - PYREXIA [None]
